FAERS Safety Report 8612009-2 (Version None)
Quarter: 2012Q3

REPORT INFORMATION
  Report Type: 
  Country: None (occurrence: None)
  Receive Date: 20120822
  Receipt Date: 20120813
  Transmission Date: 20120928
  Serious: Yes (Life-Threatening)
  Sender: FDA-Public Use
  Company Number: FR-GLAXOSMITHKLINE-B0808778A

PATIENT
  Sex: Female

DRUGS (8)
  1. METHYLPREDNISOLONE [Suspect]
     Indication: PREMEDICATION
     Dosage: 120MG UNKNOWN
     Route: 042
     Dates: start: 20120518, end: 20120518
  2. 5% GLUCOSE [Concomitant]
     Dosage: 50ML PER DAY
     Route: 042
     Dates: start: 20120518, end: 20120518
  3. ZOFRAN [Suspect]
     Indication: PREMEDICATION
     Dosage: 8MG PER DAY
     Route: 042
     Dates: start: 20120518, end: 20120518
  4. ZANTAC [Suspect]
     Indication: PREMEDICATION
     Dosage: 50MG UNKNOWN
     Route: 042
     Dates: start: 20120518, end: 20120518
  5. TAXOL [Concomitant]
     Indication: CHEMOTHERAPY
  6. PLITICAN [Suspect]
     Indication: PREMEDICATION
     Dosage: 50MG UNKNOWN
     Route: 042
     Dates: start: 20120518, end: 20120518
  7. POLARAMINE [Suspect]
     Indication: PREMEDICATION
     Dosage: 5MG UNKNOWN
     Route: 042
     Dates: start: 20120518, end: 20120518
  8. CISPLATIN [Concomitant]
     Indication: CHEMOTHERAPY

REACTIONS (3)
  - MALAISE [None]
  - ERYTHEMA [None]
  - RESPIRATORY DISORDER [None]
